FAERS Safety Report 9386354 (Version 4)
Quarter: 2014Q1

REPORT INFORMATION
  Report Type: Spontaneous
  Country: US (occurrence: US)
  Receive Date: 20130708
  Receipt Date: 20140204
  Transmission Date: 20141002
  Serious: Yes (Hospitalization, Other)
  Sender: FDA-Public Use
  Company Number: US-BIOGENIDEC-2013BI059631

PATIENT
  Age: 61 Year
  Sex: Female

DRUGS (1)
  1. TYSABRI [Suspect]
     Indication: MULTIPLE SCLEROSIS
     Route: 042
     Dates: start: 20110328, end: 20130520

REACTIONS (6)
  - Ophthalmic herpes zoster [Unknown]
  - Renal failure [Recovered/Resolved]
  - Decreased immune responsiveness [Not Recovered/Not Resolved]
  - Herpes zoster [Recovered/Resolved]
  - Varicella [Not Recovered/Not Resolved]
  - Asthenia [Not Recovered/Not Resolved]
